FAERS Safety Report 6345090-4 (Version None)
Quarter: 2009Q3

REPORT INFORMATION
  Report Type: 
  Country: None (occurrence: None)
  Receive Date: 20090909
  Receipt Date: 20070724
  Transmission Date: 20100115
  Serious: Yes (Hospitalization, Other)
  Sender: FDA-Public Use
  Company Number: US-ASTRAZENECA-2007UW02046

PATIENT
  Age: 20336 Day
  Sex: Female
  Weight: 90.5 kg

DRUGS (8)
  1. SEROQUEL [Suspect]
     Route: 048
     Dates: start: 19970101, end: 20000901
  2. HYZAAR [Concomitant]
     Dosage: EACH MORNING
     Dates: start: 19981204
  3. TENORMIN [Concomitant]
     Dosage: 50 EACH EVENING
     Dates: start: 19981204
  4. ZOLOFT [Concomitant]
     Dates: start: 19981204
  5. KLONOPIN [Concomitant]
     Dates: start: 19981204
  6. TRAZODONE [Concomitant]
     Dosage: 150 EACH EVENING
     Dates: start: 19981204
  7. PREVACID [Concomitant]
     Dates: start: 19981204
  8. EVISTA [Concomitant]
     Dates: start: 19981204

REACTIONS (11)
  - AORTIC VALVE INCOMPETENCE [None]
  - BREAST CANCER [None]
  - CARDIAC MURMUR [None]
  - CONVULSION [None]
  - HYPERCHOLESTEROLAEMIA [None]
  - LEFT VENTRICULAR HYPERTROPHY [None]
  - MITRAL VALVE INCOMPETENCE [None]
  - NAUSEA [None]
  - TRICUSPID VALVE INCOMPETENCE [None]
  - TYPE 2 DIABETES MELLITUS [None]
  - VOMITING [None]
